FAERS Safety Report 9464141 (Version 1)
Quarter: 2013Q3

REPORT INFORMATION
  Report Type: Spontaneous
  Country: FR (occurrence: FR)
  Receive Date: 20130819
  Receipt Date: 20130819
  Transmission Date: 20140515
  Serious: Yes (Hospitalization, Other)
  Sender: FDA-Public Use
  Company Number: FR-UCBSA-095397

PATIENT
  Age: 0 None
  Sex: Female
  Weight: 2.28 kg

DRUGS (11)
  1. KEPPRA [Suspect]
     Route: 064
     Dates: start: 20110601
  2. NOCTRAN [Suspect]
     Indication: SLEEP DISORDER
     Route: 064
     Dates: start: 201105, end: 20110601
  3. VALIUM [Suspect]
     Route: 064
     Dates: start: 201105, end: 20110601
  4. RIVOTRIL [Suspect]
     Route: 064
     Dates: start: 201105
  5. DEPAKINE CHRONO [Suspect]
     Indication: EPILEPSY
     Dosage: 500 MG. FILM COATED EXTENDED RELEASE TABLET
     Route: 064
     Dates: start: 201105, end: 20110601
  6. LOXAPAC [Suspect]
     Route: 064
     Dates: start: 201105, end: 20110601
  7. RISPERDALCONSTA LP [Suspect]
     Dosage: 25 MG/2 ML, POWDER AND SOLVENT FOR EXTENDED RELEASE SUSPENSION FOR INJECTION IN PRE-FILLED SYRINGE
     Route: 064
     Dates: start: 201105, end: 20110527
  8. SULFARLEM [Suspect]
     Route: 064
     Dates: start: 201105, end: 20110721
  9. LEPTICUR [Suspect]
     Route: 064
     Dates: start: 201105
  10. HALDOL DECANOAS [Suspect]
     Route: 064
     Dates: start: 20110601
  11. IMOVANE [Suspect]
     Route: 064
     Dates: start: 20110601

REACTIONS (3)
  - Cardiac murmur [Recovered/Resolved with Sequelae]
  - Low birth weight baby [Unknown]
  - Foetal exposure during pregnancy [Recovered/Resolved]
